FAERS Safety Report 4645795-7 (Version None)
Quarter: 2005Q2

REPORT INFORMATION
  Report Type: 
  Country: None (occurrence: None)
  Receive Date: 20050422
  Receipt Date: 20050422
  Transmission Date: 20051028
  Serious: Yes (Other)
  Sender: FDA-Public Use
  Company Number: None

PATIENT
  Age: 75 Year
  Sex: Male
  Weight: 93.9 kg

DRUGS (12)
  1. FOSINOPRIL [Suspect]
  2. COUMADIN [Concomitant]
  3. TERAZOSIN HCL [Concomitant]
  4. METOPROLOL TARTRATE [Concomitant]
  5. FOSINOPRIL [Concomitant]
  6. DOXYCYCLINE HYCLATE [Concomitant]
  7. ROSIGLITAZONE MALEATE [Concomitant]
  8. MULTI-VITAMIN [Concomitant]
  9. ALBUTEROL SULFATE AND IPRATROPIUM BROMIDE [Concomitant]
  10. GLYBURIDE 5MG/METFORMIN HCL [Concomitant]
  11. FLUOCINOLONE ACETONIDE [Concomitant]
  12. FUROSEMIDE [Concomitant]

REACTIONS (1)
  - HYPERKALAEMIA [None]
